FAERS Safety Report 7079412-6 (Version None)
Quarter: 2010Q4

REPORT INFORMATION
  Report Type: 
  Country: None (occurrence: None)
  Receive Date: 20101102
  Receipt Date: 20101027
  Transmission Date: 20110411
  Serious: Yes (Other)
  Sender: FDA-Public Use
  Company Number: JP-MERCK-1010USA02980

PATIENT
  Age: 68 Year
  Sex: Female

DRUGS (1)
  1. PEPCID RPD [Suspect]
     Route: 048
     Dates: start: 20101005

REACTIONS (1)
  - AGEUSIA [None]
